FAERS Safety Report 15652375 (Version 1)
Quarter: 2018Q4

REPORT INFORMATION
  Report Type: Spontaneous
  Country: US (occurrence: US)
  Receive Date: 20181123
  Receipt Date: 20181123
  Transmission Date: 20190205
  Serious: No
  Sender: FDA-Public Use
  Company Number: US-FOUNDATIONCONSUMERHC-2018-US-014140

PATIENT
  Age: 28 Year
  Sex: Female
  Weight: 70.31 kg

DRUGS (2)
  1. PLAN B ONE-STEP [Suspect]
     Active Substance: LEVONORGESTREL
     Indication: POST COITAL CONTRACEPTION
     Dosage: 1.5 MG AFTER 2 SEPARATE OCCURRENCES OF INTERCOURSE
     Route: 048
     Dates: start: 201703, end: 20180818
  2. PRENATAL VITAMINS [Concomitant]
     Active Substance: VITAMINS

REACTIONS (2)
  - Breast milk discolouration [Recovered/Resolved]
  - Lactation puerperal increased [Not Recovered/Not Resolved]

NARRATIVE: CASE EVENT DATE: 201703
